FAERS Safety Report 24258325 (Version 1)
Quarter: 2024Q3

REPORT INFORMATION
  Report Type: Spontaneous
  Country: US (occurrence: US)
  Receive Date: 20240828
  Receipt Date: 20240828
  Transmission Date: 20241016
  Serious: No
  Sender: JOHNSON AND JOHNSON
  Company Number: US-JNJFOC-20240862084

PATIENT

DRUGS (2)
  1. TREMFYA [Suspect]
     Active Substance: GUSELKUMAB
     Indication: Psoriasis
     Dosage: 100 (UNIT UNSPECIFIED)
     Route: 058
  2. TREMFYA [Suspect]
     Active Substance: GUSELKUMAB
     Indication: Psoriatic arthropathy

REACTIONS (4)
  - Nail psoriasis [Unknown]
  - Tendon pain [Unknown]
  - Product storage error [Unknown]
  - Poor quality product administered [Unknown]
